FAERS Safety Report 5606485-7 (Version None)
Quarter: 2008Q1

REPORT INFORMATION
  Report Type: 
  Country: None (occurrence: None)
  Receive Date: 20080125
  Receipt Date: 20080111
  Transmission Date: 20080703
  Serious: Yes (Other)
  Sender: FDA-Public Use
  Company Number: OPER20080004

PATIENT
  Age: 56 Year
  Sex: Male

DRUGS (5)
  1. OPANA ER [Suspect]
     Indication: PAIN
     Dosage: 40 MG, 1 TABLET TID
     Dates: start: 20071207
  2. LIDODERM [Suspect]
     Indication: PAIN
     Dosage: 5 %, 3 PATCHES DAILY,
     Dates: start: 20071201
  3. OXYCODONE AND ACETAMINOPHEN [Concomitant]
     Indication: PAIN
     Dosage: PRN, PER ORAL
     Route: 048
     Dates: start: 20080112, end: 20080112
  4. ACIPHEX [Concomitant]
  5. LUNESTA [Concomitant]

REACTIONS (9)
  - ANOREXIA [None]
  - BREAKTHROUGH PAIN [None]
  - CONVULSION [None]
  - MALAISE [None]
  - MUSCLE DISORDER [None]
  - NAUSEA [None]
  - PHARMACEUTICAL PRODUCT COMPLAINT [None]
  - TINNITUS [None]
  - VOMITING [None]
